FAERS Safety Report 9723781 (Version 2)
Quarter: 2014Q3

REPORT INFORMATION
  Report Type: Spontaneous
  Country: US (occurrence: US)
  Receive Date: 20131202
  Receipt Date: 20140804
  Transmission Date: 20150326
  Serious: Yes (Other)
  Sender: FDA-Public Use
  Company Number: US-PFIZER INC-2013337963

PATIENT
  Age: 79 Year
  Sex: Male

DRUGS (1)
  1. XALATAN [Suspect]
     Active Substance: LATANOPROST
     Indication: GLAUCOMA
     Dosage: 2 GTT (ONE DROP IN EACH EYE), 1X/DAY
     Route: 047

REACTIONS (1)
  - Prostate cancer [Unknown]
